FAERS Safety Report 6241556-6 (Version None)
Quarter: 2009Q2

REPORT INFORMATION
  Report Type: 
  Country: None (occurrence: None)
  Receive Date: 20090623
  Receipt Date: 20031010
  Transmission Date: 20091009
  Serious: Yes (Hospitalization)
  Sender: FDA-Public Use
  Company Number: BR-ROCHE-344598

PATIENT
  Sex: Male
  Weight: 57 kg

DRUGS (49)
  1. DACLIZUMAB [Suspect]
     Route: 042
     Dates: start: 20030603
  2. DACLIZUMAB [Suspect]
     Route: 042
     Dates: start: 20030616
  3. MYCOPHENOLATE MOFETIL [Suspect]
     Dosage: DRUG REPORTED: MMF
     Route: 048
     Dates: start: 20030602, end: 20030804
  4. MYCOPHENOLATE MOFETIL [Suspect]
     Route: 048
     Dates: start: 20030805, end: 20030808
  5. MYCOPHENOLATE MOFETIL [Suspect]
     Route: 048
     Dates: start: 20030809, end: 20030811
  6. MYCOPHENOLATE MOFETIL [Suspect]
     Route: 048
     Dates: start: 20030821
  7. MYCOPHENOLATE MOFETIL [Suspect]
     Route: 048
     Dates: start: 20031009
  8. MYCOPHENOLATE MOFETIL [Suspect]
     Route: 048
     Dates: start: 20031025
  9. MYCOPHENOLATE MOFETIL [Suspect]
     Route: 048
     Dates: start: 20031124
  10. TACROLIMUS [Suspect]
     Route: 048
     Dates: start: 20030602
  11. TACROLIMUS [Suspect]
     Route: 048
     Dates: start: 20030605
  12. TACROLIMUS [Suspect]
     Route: 048
     Dates: start: 20030612, end: 20030630
  13. TACROLIMUS [Suspect]
     Route: 048
     Dates: start: 20030702, end: 20030714
  14. TACROLIMUS [Suspect]
     Route: 048
     Dates: start: 20030715, end: 20030807
  15. TACROLIMUS [Suspect]
     Route: 048
     Dates: start: 20030808, end: 20030825
  16. TACROLIMUS [Suspect]
     Route: 048
     Dates: start: 20030826, end: 20030828
  17. TACROLIMUS [Suspect]
     Route: 048
     Dates: start: 20030829
  18. METHYLPREDNISOLONE [Suspect]
     Route: 042
     Dates: start: 20030602, end: 20030602
  19. METHYLPREDNISOLONE [Suspect]
     Route: 042
     Dates: start: 20030603, end: 20030603
  20. METHYLPREDNISOLONE [Suspect]
     Route: 042
     Dates: start: 20030604, end: 20031028
  21. METHYLPREDNISOLONE [Suspect]
     Route: 042
     Dates: start: 20031124, end: 20031126
  22. PREDNISONE [Suspect]
     Route: 048
     Dates: start: 20030605, end: 20030610
  23. PREDNISONE [Suspect]
     Route: 048
     Dates: start: 20030611, end: 20030616
  24. PREDNISONE [Suspect]
     Route: 048
     Dates: start: 20030617, end: 20030903
  25. PREDNISONE [Suspect]
     Route: 048
     Dates: start: 20030904, end: 20031003
  26. PREDNISONE [Suspect]
     Route: 048
     Dates: start: 20031004
  27. PREDNISONE [Suspect]
     Route: 048
     Dates: start: 20031025, end: 20031117
  28. PREDNISONE [Suspect]
     Route: 048
     Dates: start: 20031124
  29. PREDNISONE [Suspect]
     Route: 048
     Dates: start: 20031128
  30. PREDNISONE [Suspect]
     Route: 048
     Dates: start: 20031209
  31. PREDNISONE [Suspect]
     Route: 048
     Dates: start: 20040303
  32. PREDNISONE [Suspect]
     Route: 048
     Dates: start: 20040623
  33. ALBENDAZOLE [Concomitant]
     Route: 048
     Dates: start: 20030602
  34. AMIKACIN [Concomitant]
     Route: 042
     Dates: start: 20030602
  35. AMLODIPINE [Concomitant]
     Route: 048
     Dates: start: 20030602
  36. AMLODIPINE [Concomitant]
     Route: 048
     Dates: start: 20030627, end: 20031009
  37. AMLODIPINE [Concomitant]
     Route: 048
     Dates: start: 20031012, end: 20031110
  38. AMPICILLIN [Concomitant]
     Route: 042
     Dates: start: 20030602
  39. ATENOLOL [Concomitant]
     Route: 048
     Dates: start: 20030602
  40. ATENOLOL [Concomitant]
     Route: 048
     Dates: start: 20030627, end: 20031009
  41. ATENOLOL [Concomitant]
     Route: 048
     Dates: start: 20031012, end: 20031209
  42. CAPTOPRIL [Concomitant]
     Route: 048
     Dates: start: 20030602, end: 20030603
  43. GANCICLOVIR [Concomitant]
     Dosage: DRUG REPORTED: GANCYCLOVIR
     Route: 042
     Dates: start: 20030811, end: 20030818
  44. NEOMYCIN [Concomitant]
     Route: 061
     Dates: start: 20030602, end: 20030613
  45. NYSTATIN [Concomitant]
     Dosage: DOSE REPORTED: 1 MU
     Route: 048
     Dates: start: 20030606, end: 20030613
  46. OMEPRAZOL [Concomitant]
     Indication: DRUG USE FOR UNKNOWN INDICATION
     Route: 048
     Dates: start: 20030603
  47. OXACILLIN [Concomitant]
     Dosage: DRUG REPORTED: OXACILIN
     Route: 042
     Dates: start: 20030602
  48. SULFAMETOXAZOL [Concomitant]
     Indication: DRUG USE FOR UNKNOWN INDICATION
     Route: 048
     Dates: start: 20030606
  49. SULFAMETHOXAZOLE AND TRIMETHOPRIM [Concomitant]
     Dosage: DRUG: SULFAMETHOXAZOLE+TRMETHOPRIM
     Route: 048
     Dates: start: 20030606

REACTIONS (2)
  - CYTOMEGALOVIRUS INFECTION [None]
  - PERITONITIS [None]
